FAERS Safety Report 25262771 (Version 3)
Quarter: 2025Q3

REPORT INFORMATION
  Report Type: Spontaneous
  Country: US (occurrence: US)
  Receive Date: 20250502
  Receipt Date: 20250821
  Transmission Date: 20251021
  Serious: No
  Sender: BAUSCH AND LOMB
  Company Number: US-BAUSCHBL-2025BNL007397

PATIENT
  Age: 86 Year
  Sex: Female

DRUGS (3)
  1. MIEBO [Suspect]
     Active Substance: PERFLUOROHEXYLOCTANE
     Indication: Foreign body sensation in eyes
     Dosage: ONE DROP IN EACH EYE 4 TIMES A DAY
     Route: 047
     Dates: start: 202504
  2. MIEBO [Suspect]
     Active Substance: PERFLUOROHEXYLOCTANE
     Indication: Lacrimation increased
  3. MIEBO [Suspect]
     Active Substance: PERFLUOROHEXYLOCTANE
     Indication: Dry eye

REACTIONS (15)
  - Eye swelling [Unknown]
  - Ocular hyperaemia [Unknown]
  - Periorbital swelling [Unknown]
  - Visual impairment [Unknown]
  - Product complaint [Unknown]
  - Product outer packaging issue [Unknown]
  - Product use complaint [Unknown]
  - Circumstance or information capable of leading to medication error [Unknown]
  - Product use issue [Unknown]
  - Product delivery mechanism issue [Unknown]
  - Wrong technique in product usage process [Unknown]
  - Liquid product physical issue [Unknown]
  - Product container issue [Unknown]
  - Exposure via skin contact [Unknown]
  - Accidental exposure to product [Unknown]

NARRATIVE: CASE EVENT DATE: 20250101
